FAERS Safety Report 10181998 (Version 1)
Quarter: 2014Q2

REPORT INFORMATION
  Report Type: Spontaneous
  Country: US (occurrence: US)
  Receive Date: 20140519
  Receipt Date: 20140519
  Transmission Date: 20141212
  Serious: No
  Sender: FDA-Public Use
  Company Number: US-TEVA-480845USA

PATIENT
  Sex: Female

DRUGS (2)
  1. PROAIR HFA [Suspect]
     Dates: start: 201104
  2. QVAR [Suspect]
     Dates: start: 201104

REACTIONS (1)
  - Laryngitis [Recovering/Resolving]
